FAERS Safety Report 4440634-1 (Version None)
Quarter: 2004Q3

REPORT INFORMATION
  Report Type: 
  Country: None (occurrence: None)
  Receive Date: 20040903
  Receipt Date: 20040825
  Transmission Date: 20050211
  Serious: Yes (Other)
  Sender: FDA-Public Use
  Company Number: FR-JNJFOC-20040503103

PATIENT
  Sex: Female

DRUGS (3)
  1. PROPULSID [Suspect]
     Route: 049
     Dates: start: 20040512, end: 20040514
  2. CO-TRIMOXAZOLE [Concomitant]
     Route: 049
     Dates: start: 20031201
  3. CO-TRIMOXAZOLE [Concomitant]
     Route: 049
     Dates: start: 20031201

REACTIONS (1)
  - ELECTROCARDIOGRAM QT CORRECTED INTERVAL PROLONGED [None]
